FAERS Safety Report 6275723-2 (Version None)
Quarter: 2009Q3

REPORT INFORMATION
  Report Type: 
  Country: None (occurrence: None)
  Receive Date: 20090721
  Receipt Date: 20090716
  Transmission Date: 20100115
  Serious: Yes (Death, Hospitalization, Other)
  Sender: FDA-Public Use
  Company Number: PHHO2007JP11348

PATIENT
  Sex: Male
  Weight: 62 kg

DRUGS (27)
  1. NEORAL [Suspect]
     Indication: MYASTHENIA GRAVIS
     Dosage: 200 MG/DAILY
     Route: 048
     Dates: start: 20061125, end: 20061231
  2. PREDNISOLONE [Suspect]
     Indication: MYASTHENIA GRAVIS
     Dosage: 5 MG
     Route: 048
     Dates: start: 20061023
  3. PREDNISOLONE [Suspect]
     Dosage: 10 MG
     Route: 048
  4. PREDNISOLONE [Suspect]
     Dosage: 15 MG
     Route: 048
  5. PREDNISOLONE [Suspect]
     Dosage: 20 MG
     Route: 048
  6. PREDNISOLONE [Suspect]
     Dosage: 30 MG
     Route: 048
  7. PREDNISOLONE [Suspect]
     Dosage: 40 MG
     Dates: end: 20061230
  8. MESTINON [Concomitant]
     Indication: MYASTHENIA GRAVIS
     Dosage: 60 MG
     Dates: start: 20060902
  9. MESTINON [Concomitant]
     Dosage: 150 MG
  10. MESTINON [Concomitant]
     Dosage: 180 MG
  11. MESTINON [Concomitant]
     Dosage: 210 MG
  12. MESTINON [Concomitant]
     Dosage: 240 MG
  13. MESTINON [Concomitant]
     Dosage: 100  MG
     Dates: end: 20061230
  14. MYTELASE [Concomitant]
     Indication: MYASTHENIA GRAVIS
     Dosage: 10 MG
     Dates: start: 20061130, end: 20061230
  15. ASPIRIN [Concomitant]
     Indication: ANTIPLATELET THERAPY
     Dosage: 100 MG
     Route: 048
     Dates: start: 20061002, end: 20061230
  16. CEROCRAL [Concomitant]
     Dosage: 60 MG
     Route: 048
     Dates: start: 20061002, end: 20061230
  17. EUGLUCON [Concomitant]
     Indication: DIABETES MELLITUS
     Dosage: 5 MG
     Route: 048
     Dates: start: 20061002, end: 20061230
  18. BASEN [Concomitant]
     Indication: DIABETES MELLITUS
     Dosage: 0.6 MG
     Route: 048
     Dates: start: 20061002, end: 20061230
  19. ZYLORIC [Concomitant]
     Indication: HYPERURICAEMIA
     Dosage: 200 MG
     Route: 048
     Dates: start: 20061002, end: 20061230
  20. BEZATOL - SLOW RELEASE [Concomitant]
     Indication: HYPERLIPIDAEMIA
     Dosage: 2100 MG
     Route: 048
     Dates: start: 20061214, end: 20061230
  21. SELBEX [Concomitant]
     Indication: GASTRITIS
     Dosage: 150 MG
     Route: 048
     Dates: start: 20061002, end: 20061230
  22. INSULIN [Concomitant]
     Dosage: UNK
  23. INSULIN [Concomitant]
     Dosage: UNK
     Dates: start: 20061201
  24. PYRIDOSTIGMINE BROMIDE [Concomitant]
     Dosage: 240 MG
  25. PYRIDOSTIGMINE BROMIDE [Concomitant]
     Dosage: 180 MG
  26. VOGLIBOSE [Concomitant]
     Dosage: 0.6 MG
  27. GLIBENCLAMIDE [Concomitant]
     Dosage: 3.75 MG

REACTIONS (6)
  - CARDIO-RESPIRATORY ARREST [None]
  - DIABETES MELLITUS [None]
  - DRUG INEFFECTIVE [None]
  - HYPOXIC ENCEPHALOPATHY [None]
  - INFECTION [None]
  - MYASTHENIA GRAVIS [None]
